FAERS Safety Report 4539672-X (Version None)
Quarter: 2004Q4

REPORT INFORMATION
  Report Type: 
  Country: None (occurrence: None)
  Receive Date: 20041228
  Receipt Date: 20041215
  Transmission Date: 20050328
  Serious: Yes (Hospitalization)
  Sender: FDA-Public Use
  Company Number: SE-MERCK-0412SWE00030

PATIENT
  Age: 55 Year
  Sex: Female

DRUGS (5)
  1. VIOXX [Suspect]
     Indication: PAIN
     Route: 048
     Dates: start: 20010101, end: 20041001
  2. ZOPICLONE [Concomitant]
     Indication: SLEEP DISORDER
     Route: 048
  3. PROPIOMAZINE MALEATE [Concomitant]
     Route: 065
  4. TRIMETHOPRIM [Concomitant]
     Route: 048
  5. TRIMEPRAZINE TARTRATE [Concomitant]
     Route: 048

REACTIONS (4)
  - CHEST DISCOMFORT [None]
  - DYSPNOEA [None]
  - PARAESTHESIA [None]
  - TIC [None]
